FAERS Safety Report 15434278 (Version 1)
Quarter: 2018Q3

REPORT INFORMATION
  Report Type: Spontaneous
  Country: AU (occurrence: AU)
  Receive Date: 20180927
  Receipt Date: 20180927
  Transmission Date: 20181010
  Serious: Yes (Life-Threatening, Hospitalization)
  Sender: FDA-Public Use
  Company Number: PHHY2018AU012985

PATIENT
  Sex: Female

DRUGS (2)
  1. FAMVIR [Suspect]
     Active Substance: FAMCICLOVIR
     Indication: HERPES ZOSTER
     Dosage: UNK
     Route: 065
     Dates: end: 201711
  2. FAMVIR [Suspect]
     Active Substance: FAMCICLOVIR
     Indication: MIGRAINE

REACTIONS (1)
  - Immune thrombocytopenic purpura [Unknown]
